FAERS Safety Report 9090762 (Version 2)
Quarter: 2013Q1

REPORT INFORMATION
  Report Type: Spontaneous
  Country: US (occurrence: US)
  Receive Date: 20130131
  Receipt Date: 20130319
  Transmission Date: 20140127
  Serious: Yes (Other)
  Sender: FDA-Public Use
  Company Number: US-PFIZER INC-2013037628

PATIENT
  Age: 51 Year
  Sex: Female
  Weight: 90.7 kg

DRUGS (4)
  1. PREMARIN [Suspect]
     Indication: MENOPAUSAL SYMPTOMS
     Dosage: UNK, WEEKLY
     Route: 067
     Dates: start: 2009, end: 201301
  2. PREMARIN [Suspect]
     Indication: ATROPHIC VULVOVAGINITIS
     Dosage: 1 G, WEEKLY
     Route: 067
  3. PREMPRO [Suspect]
     Indication: HOT FLUSH
     Dosage: 1 DF (1 TABLET), 1X/DAY
     Route: 048
     Dates: start: 2009
  4. JANUMET [Concomitant]
     Indication: DIABETES MELLITUS
     Dosage: UNK
     Dates: start: 20121129

REACTIONS (4)
  - Diabetes mellitus [Unknown]
  - Cataract [Unknown]
  - Vulvovaginal burning sensation [Unknown]
  - Drug ineffective [Unknown]
